FAERS Safety Report 7903016-3 (Version None)
Quarter: 2011Q4

REPORT INFORMATION
  Report Type: 
  Country: None (occurrence: None)
  Receive Date: 20111109
  Receipt Date: 20111027
  Transmission Date: 20120403
  Serious: Yes (Hospitalization, Other)
  Sender: FDA-Public Use
  Company Number: ES-ELI_LILLY_AND_COMPANY-ES201110007576

PATIENT
  Sex: Female
  Weight: 106 kg

DRUGS (8)
  1. IVOR [Concomitant]
     Indication: INFECTION
     Dosage: 1 DF, QD
     Route: 058
  2. ENALAPRIL MALEATE [Concomitant]
     Indication: HYPERTENSION
     Dosage: 1 DF, QD
     Route: 048
  3. NOLOTIL [Concomitant]
     Indication: ANALGESIC THERAPY
     Dosage: 1 DF, EVERY 8 HRS
     Route: 048
  4. SIMVASTATIN [Concomitant]
     Indication: BLOOD CHOLESTEROL ABNORMAL
     Dosage: 1 DF, QD
     Route: 048
  5. FORTEO [Suspect]
     Indication: OSTEOPOROSIS
     Dosage: 20 UG, QD
     Route: 058
     Dates: start: 20110909
  6. OMEPRAZOLE [Concomitant]
     Indication: GASTRIC DISORDER
     Dosage: 1 DF, QD
     Route: 048
  7. LOSARTAN POTASSIUM [Concomitant]
     Dosage: 1 DF, QD
     Route: 048
  8. CARVEDILOL [Concomitant]
     Indication: CARDIAC DISORDER
     Dosage: 1 DF, QD
     Route: 048

REACTIONS (2)
  - DEVICE ISSUE [None]
  - UPPER LIMB FRACTURE [None]
